FAERS Safety Report 7775828-0 (Version None)
Quarter: 2011Q3

REPORT INFORMATION
  Report Type: 
  Country: None (occurrence: None)
  Receive Date: 20110923
  Receipt Date: 20110919
  Transmission Date: 20111222
  Serious: Yes (Hospitalization)
  Sender: FDA-Public Use
  Company Number: PHHY2011US68980

PATIENT
  Sex: Female

DRUGS (6)
  1. TYLENOL-500 [Concomitant]
  2. PROTONIX [Concomitant]
     Indication: GASTROOESOPHAGEAL REFLUX DISEASE
     Dosage: 40 MG, PER DAY
     Route: 048
  3. LOPID [Concomitant]
     Dosage: 1200 MG, PER DAY
     Route: 048
  4. RECLAST [Suspect]
     Indication: OSTEOPOROSIS
     Dosage: 5 MG/100 ML, YEARLY
     Route: 042
     Dates: start: 20110727, end: 20110727
  5. LISINOPRIL [Concomitant]
     Indication: HYPERTENSION
     Dosage: 20 MG, PER DAY
     Route: 048
  6. LORTAB [Concomitant]
     Indication: PAIN
     Dosage: 7.5 MG, PRN
     Route: 048

REACTIONS (8)
  - BACK PAIN [None]
  - CHEST DISCOMFORT [None]
  - ABDOMINAL PAIN [None]
  - BODY TEMPERATURE INCREASED [None]
  - MUSCULOSKELETAL CHEST PAIN [None]
  - HYPOTENSION [None]
  - PAIN IN EXTREMITY [None]
  - HEART RATE INCREASED [None]
